FAERS Safety Report 16865256 (Version 1)
Quarter: 2019Q3

REPORT INFORMATION
  Report Type: Spontaneous
  Country: SE (occurrence: SE)
  Receive Date: 20190930
  Receipt Date: 20190930
  Transmission Date: 20191005
  Serious: Yes (Hospitalization)
  Sender: FDA-Public Use
  Company Number: SE-SUN PHARMACEUTICAL INDUSTRIES LTD-2019R1-222075

PATIENT
  Age: 25 Year
  Sex: Male

DRUGS (3)
  1. PROPAVAN [Suspect]
     Active Substance: PROPIOMAZINE
     Indication: PRODUCT USED FOR UNKNOWN INDICATION
     Dosage: 20 ST A 25 MG (500MG)
     Route: 065
     Dates: start: 20190726, end: 20190726
  2. SERTRALINE [Suspect]
     Active Substance: SERTRALINE HYDROCHLORIDE
     Indication: PRODUCT USED FOR UNKNOWN INDICATION
     Dosage: UNK
     Route: 065
     Dates: start: 20190726, end: 20190726
  3. LERGIGAN (PROMETHAZINE/ PROMETHAZINE HYDROCHLORIDE) [Suspect]
     Active Substance: PROMETHAZINE HYDROCHLORIDE
     Indication: PRODUCT USED FOR UNKNOWN INDICATION
     Dosage: OKAND MANGD
     Route: 048
     Dates: start: 20190726, end: 20190726

REACTIONS (4)
  - Intentional self-injury [Unknown]
  - Intentional overdose [Unknown]
  - Tachycardia [Unknown]
  - Depressed level of consciousness [Unknown]

NARRATIVE: CASE EVENT DATE: 20190726
